FAERS Safety Report 17130565 (Version 15)
Quarter: 2021Q2

REPORT INFORMATION
  Report Type: Report from Study
  Country: CN (occurrence: CN)
  Receive Date: 20191209
  Receipt Date: 20210615
  Transmission Date: 20210716
  Serious: Yes (Hospitalization)
  Sender: FDA-Public Use
  Company Number: CN-ROCHE-2484890

PATIENT
  Age: 63 Year
  Sex: Female
  Weight: 45 kg

DRUGS (32)
  1. POTASSIUM CHLORIDE. [Concomitant]
     Active Substance: POTASSIUM CHLORIDE
     Dates: start: 20191111, end: 20191127
  2. POTASSIUM CHLORIDE. [Concomitant]
     Active Substance: POTASSIUM CHLORIDE
     Dates: start: 20191127
  3. FUROSEMIDE. [Concomitant]
     Active Substance: FUROSEMIDE
     Dates: start: 20191124, end: 20191124
  4. SODIUM BICARBONATE. [Concomitant]
     Active Substance: SODIUM BICARBONATE
     Dates: start: 20191124, end: 20191124
  5. OMEPRAZOLE. [Concomitant]
     Active Substance: OMEPRAZOLE
     Dosage: ENTERIC COATED PELLETS
     Dates: start: 20191203
  6. CEFUROXIME AXETIL. [Concomitant]
     Active Substance: CEFUROXIME AXETIL
     Dates: start: 20191104, end: 2019
  7. AMBROXOL HYDROCHLORIDE [Concomitant]
     Active Substance: AMBROXOL HYDROCHLORIDE
     Dates: start: 20191124, end: 20191203
  8. POTASSIUM CHLORIDE. [Concomitant]
     Active Substance: POTASSIUM CHLORIDE
     Dates: start: 20191124, end: 20191127
  9. LACTULOSE. [Concomitant]
     Active Substance: LACTULOSE
     Dosage: SOLUTION
     Route: 048
     Dates: start: 20191130, end: 20191201
  10. AMIODARONE HYDROCHLORIDE. [Concomitant]
     Active Substance: AMIODARONE HYDROCHLORIDE
     Dates: start: 20200122, end: 2020
  11. LEVOFLOXACIN HYDROCHLORIDE [Concomitant]
     Active Substance: LEVOFLOXACIN HYDROCHLORIDE
     Dosage: 6 DROPS
     Dates: start: 20191104, end: 2019
  12. METHYLPREDNISOLONE SODIUM SUCCINATE. [Concomitant]
     Active Substance: METHYLPREDNISOLONE SODIUM SUCCINATE
     Dates: start: 20191128, end: 20191202
  13. METHYLPREDNISOLONE SODIUM SUCCINATE. [Concomitant]
     Active Substance: METHYLPREDNISOLONE SODIUM SUCCINATE
     Dates: start: 20191203, end: 20191203
  14. HEPARIN CALCIUM [Concomitant]
     Active Substance: HEPARIN CALCIUM
     Dates: start: 20191217, end: 2019
  15. OMEPRAZOLE MAGNESIUM. [Concomitant]
     Active Substance: OMEPRAZOLE MAGNESIUM
     Dates: start: 20200122, end: 2020
  16. POTASSIUM CHLORIDE. [Concomitant]
     Active Substance: POTASSIUM CHLORIDE
     Dosage: SUSTAINED RELEASE
     Dates: start: 20191127
  17. COMPOUND SODIUM CHLORIDE [Concomitant]
     Dates: start: 20191124, end: 20191124
  18. IPRATROPIUM BROMIDE. [Concomitant]
     Active Substance: IPRATROPIUM BROMIDE
     Dates: start: 20191201, end: 20191201
  19. MEDROL [Concomitant]
     Active Substance: METHYLPREDNISOLONE
     Dates: start: 20200122, end: 2020
  20. METHYLPREDNISOLONE SODIUM SUCCINATE. [Concomitant]
     Active Substance: METHYLPREDNISOLONE SODIUM SUCCINATE
     Dates: start: 20191124, end: 20191124
  21. METHYLPREDNISOLONE SODIUM SUCCINATE. [Concomitant]
     Active Substance: METHYLPREDNISOLONE SODIUM SUCCINATE
     Dates: start: 20191125, end: 20191125
  22. POTASSIUM CHLORIDE. [Concomitant]
     Active Substance: POTASSIUM CHLORIDE
     Dates: start: 20191124, end: 20191124
  23. LACTOBACILLUS ACIDOPHILUS COMPOUND [Concomitant]
     Active Substance: LACTOBACILLUS ACIDOPHILUS
     Dates: start: 20191130, end: 20191201
  24. CELECOXIB. [Concomitant]
     Active Substance: CELECOXIB
     Dates: start: 20191017, end: 2019
  25. METHYLPREDNISOLONE SODIUM SUCCINATE. [Concomitant]
     Active Substance: METHYLPREDNISOLONE SODIUM SUCCINATE
     Dates: start: 20191126, end: 20191127
  26. ATEZOLIZUMAB. [Suspect]
     Active Substance: ATEZOLIZUMAB
     Indication: NON-SMALL CELL LUNG CANCER
     Dosage: DATE OF LAST DOSE PRIOR TO ADVERSE EVENT ONSET: 06/NOV/2019
     Route: 042
     Dates: start: 20190703, end: 20191106
  27. SODIUM BICARBONATE. [Concomitant]
     Active Substance: SODIUM BICARBONATE
     Dates: start: 20191124, end: 20191201
  28. INDOMETHACIN. [Concomitant]
     Active Substance: INDOMETHACIN
     Dates: start: 20191124, end: 20191124
  29. BUDESONIDE. [Concomitant]
     Active Substance: BUDESONIDE
     Dates: start: 20191201, end: 20191201
  30. PREDNISONE ACETATE [Concomitant]
     Active Substance: PREDNISONE ACETATE
     Dates: start: 20191203
  31. COMPOUND SODIUM CHLORIDE [Concomitant]
     Dates: start: 20191124, end: 20191124
  32. METHOXYPHENAMINE [Concomitant]
     Active Substance: METHOXYPHENAMINE
     Dates: start: 20200122, end: 2020

REACTIONS (6)
  - Autoimmune myocarditis [Recovered/Resolved]
  - Thrombosis [Recovered/Resolved]
  - Immune-mediated hepatic disorder [Recovered/Resolved]
  - Dermatitis allergic [Recovered/Resolved]
  - Hypothyroidism [Recovered/Resolved]
  - Myositis [Recovered/Resolved]

NARRATIVE: CASE EVENT DATE: 20191124
